FAERS Safety Report 9016407 (Version 4)
Quarter: 2013Q1

REPORT INFORMATION
  Report Type: Spontaneous
  Country: US (occurrence: US)
  Receive Date: 20130116
  Receipt Date: 20130307
  Transmission Date: 20140127
  Serious: Yes (Hospitalization)
  Sender: FDA-Public Use
  Company Number: US-GLAXOSMITHKLINE-A0897702A

PATIENT
  Age: 53 Year
  Sex: Female

DRUGS (1)
  1. AVANDIA [Suspect]
     Indication: TYPE 2 DIABETES MELLITUS
     Dosage: 8MG PER DAY
     Route: 048
     Dates: start: 20011121, end: 20060817

REACTIONS (5)
  - Angina pectoris [Not Recovered/Not Resolved]
  - Cardiac failure congestive [Unknown]
  - Cardiovascular disorder [Unknown]
  - Chest pain [Unknown]
  - Dyspnoea [Unknown]
